FAERS Safety Report 8002736-2 (Version None)
Quarter: 2011Q4

REPORT INFORMATION
  Report Type: 
  Country: None (occurrence: None)
  Receive Date: 20111222
  Receipt Date: 20111209
  Transmission Date: 20120403
  Serious: Yes (Hospitalization)
  Sender: FDA-Public Use
  Company Number: JP-WATSON-2011-20449

PATIENT
  Age: 32 Year
  Sex: Female

DRUGS (5)
  1. CLOXAZOLAM [Suspect]
     Indication: INTENTIONAL OVERDOSE
  2. TRIAZOLAM [Suspect]
     Indication: INTENTIONAL OVERDOSE
     Dosage: 3.25 MG, SINGLE
  3. IMIPRAMINE [Suspect]
     Indication: INTENTIONAL OVERDOSE
  4. BROMAZEPAM (UNKNOWN) [Suspect]
     Indication: INTENTIONAL OVERDOSE
     Dosage: 50 MG, SINGLE
  5. FLUNITRAZEPAM [Suspect]
     Indication: INTENTIONAL OVERDOSE

REACTIONS (5)
  - INTENTIONAL OVERDOSE [None]
  - VENTRICULAR TACHYCARDIA [None]
  - SHOCK [None]
  - SOMNOLENCE [None]
  - COMA SCALE ABNORMAL [None]
